FAERS Safety Report 5801846-5 (Version None)
Quarter: 2008Q3

REPORT INFORMATION
  Report Type: 
  Country: None (occurrence: None)
  Receive Date: 20080707
  Receipt Date: 20080623
  Transmission Date: 20090109
  Serious: Yes (Life-Threatening, Hospitalization, Disabling, Other)
  Sender: FDA-Public Use
  Company Number: PL-MERCK-0610POL00015

PATIENT
  Age: 65 Year
  Sex: Female
  Weight: 86 kg

DRUGS (42)
  1. SINGULAIR [Suspect]
     Indication: RHINITIS ALLERGIC
     Route: 048
     Dates: start: 20041101
  2. SINGULAIR [Suspect]
     Route: 048
     Dates: start: 20060324
  3. SINGULAIR [Suspect]
     Indication: ASTHMA
     Route: 048
     Dates: start: 20041101
  4. SINGULAIR [Suspect]
     Route: 048
     Dates: start: 20060324
  5. LEVOTHYROXINE SODIUM [Concomitant]
     Indication: HYPERTHYROIDISM
     Route: 048
     Dates: start: 19991007
  6. QUINAPRIL HYDROCHLORIDE [Concomitant]
     Indication: HYPERTENSION
     Route: 048
     Dates: start: 20040914
  7. QUINAPRIL HYDROCHLORIDE [Concomitant]
     Route: 048
     Dates: start: 20050901
  8. QUINAPRIL HYDROCHLORIDE [Concomitant]
     Route: 048
     Dates: start: 20051004
  9. TICLOPIDINE HYDROCHLORIDE [Concomitant]
     Indication: HYPERTENSION
     Route: 048
     Dates: start: 20040914
  10. AMLODIPINE BESYLATE [Concomitant]
     Indication: MYOCARDIAL ISCHAEMIA
     Route: 048
     Dates: start: 20040914, end: 20050901
  11. AMLODIPINE BESYLATE [Concomitant]
     Route: 048
     Dates: start: 20050901
  12. AMLODIPINE BESYLATE [Concomitant]
     Route: 048
     Dates: start: 20051004
  13. AMLODIPINE BESYLATE [Concomitant]
     Indication: HYPERTENSION
     Route: 048
     Dates: start: 20040914, end: 20050901
  14. AMLODIPINE BESYLATE [Concomitant]
     Route: 048
     Dates: start: 20050901
  15. AMLODIPINE BESYLATE [Concomitant]
     Route: 048
     Dates: start: 20051004
  16. RANITIDINE [Concomitant]
     Route: 048
     Dates: start: 20040914
  17. SIMVASTATIN [Concomitant]
     Route: 048
     Dates: start: 20040914, end: 20051214
  18. SIMVASTATIN [Concomitant]
     Route: 048
     Dates: start: 20060101
  19. NICERGOLINE [Concomitant]
     Route: 048
     Dates: start: 20050516, end: 20050901
  20. PERAZINE DIMALONATE [Concomitant]
     Indication: CEREBRAL ISCHAEMIA
     Route: 048
     Dates: start: 20050101
  21. ASPIRIN [Concomitant]
     Indication: MYOCARDIAL ISCHAEMIA
     Route: 048
     Dates: start: 20051214
  22. ASPIRIN [Concomitant]
     Indication: CORONARY ARTERY DISEASE
     Route: 048
     Dates: start: 20051214
  23. IMIPRAMINE HYDROCHLORIDE [Concomitant]
     Route: 048
     Dates: start: 20051214, end: 20051219
  24. METOPROLOL [Concomitant]
     Route: 048
     Dates: start: 20051219
  25. ISOSORBIDE DINITRATE [Concomitant]
     Route: 065
     Dates: start: 20051214, end: 20051216
  26. SIMVASTATIN [Concomitant]
     Indication: HYPERCHOLESTEROLAEMIA
     Route: 048
     Dates: start: 20051219
  27. CHLORTHALIDONE [Concomitant]
     Route: 048
     Dates: start: 20060101
  28. PREDNISONE [Concomitant]
     Route: 048
     Dates: start: 20041101
  29. LORATADINE [Concomitant]
     Indication: HYPERSENSITIVITY
     Route: 048
     Dates: start: 20040101
  30. FLUVOXAMINE MALEATE [Concomitant]
     Route: 048
     Dates: start: 20051201
  31. MODAFINIL [Concomitant]
     Route: 048
     Dates: start: 20041101
  32. ACEBUTOLOL HYDROCHLORIDE [Concomitant]
     Route: 048
  33. SIMVASTATIN [Concomitant]
     Route: 065
  34. NICERGOLINE [Concomitant]
     Route: 065
  35. NICERGOLINE [Concomitant]
     Route: 065
  36. LORATADINE [Concomitant]
     Route: 065
  37. METOPROLOL [Concomitant]
     Route: 065
  38. VISNADINE [Concomitant]
     Route: 065
  39. LEVOTHYROXINE SODIUM [Concomitant]
     Route: 065
     Dates: start: 20040614
  40. CETIRIZINE HYDROCHLORIDE [Concomitant]
     Route: 065
  41. ENALAPRIL MALEATE [Concomitant]
     Route: 065
  42. PERAZINE DIMALONATE [Concomitant]
     Indication: CEREBROVASCULAR ACCIDENT
     Route: 048
     Dates: start: 20050501

REACTIONS (41)
  - ABDOMINAL DISTENSION [None]
  - ABDOMINAL PAIN [None]
  - ACUTE CORONARY SYNDROME [None]
  - ANXIETY [None]
  - ARTHRALGIA [None]
  - ASTHENIA [None]
  - AUTONOMIC NERVOUS SYSTEM IMBALANCE [None]
  - BACK PAIN [None]
  - BLOOD THYROID STIMULATING HORMONE INCREASED [None]
  - BONE PAIN [None]
  - CEREBROVASCULAR ACCIDENT [None]
  - CEREBROVASCULAR DISORDER [None]
  - CHEST PAIN [None]
  - CONJUNCTIVAL HYPERAEMIA [None]
  - COUGH [None]
  - DEPRESSION [None]
  - DIZZINESS [None]
  - DRY MOUTH [None]
  - DYSPNOEA [None]
  - FACE OEDEMA [None]
  - FATIGUE [None]
  - FEELING ABNORMAL [None]
  - GENERALISED OEDEMA [None]
  - HEADACHE [None]
  - HYPERCHOLESTEROLAEMIA [None]
  - HYPERTENSION [None]
  - HYPOAESTHESIA [None]
  - HYPOTENSION [None]
  - MENTAL IMPAIRMENT [None]
  - MOVEMENT DISORDER [None]
  - MUSCLE SPASMS [None]
  - MYALGIA [None]
  - NAUSEA [None]
  - OBESITY [None]
  - OEDEMA PERIPHERAL [None]
  - PETECHIAE [None]
  - PRURITUS [None]
  - RASH [None]
  - SKIN TIGHTNESS [None]
  - SOMNOLENCE [None]
  - SYNCOPE [None]
